FAERS Safety Report 6209097-X (Version None)
Quarter: 2009Q2

REPORT INFORMATION
  Report Type: 
  Country: None (occurrence: None)
  Receive Date: 20090529
  Receipt Date: 20090518
  Transmission Date: 20091009
  Serious: Yes (Hospitalization)
  Sender: FDA-Public Use
  Company Number: JP-PFIZER INC-2009200416

PATIENT
  Age: 54 Year

DRUGS (2)
  1. BLINDED *ANASTROZOLE [Suspect]
     Indication: BREAST CANCER
     Dosage: UNK
     Route: 048
     Dates: start: 20070928
  2. BLINDED EXEMESTANE [Suspect]
     Indication: BREAST CANCER
     Dosage: UNK
     Route: 048
     Dates: start: 20070928

REACTIONS (2)
  - CONDITION AGGRAVATED [None]
  - HEPATIC FUNCTION ABNORMAL [None]
